FAERS Safety Report 6185494-6 (Version None)
Quarter: 2009Q2

REPORT INFORMATION
  Report Type: 
  Country: None (occurrence: None)
  Receive Date: 20090511
  Receipt Date: 20090507
  Transmission Date: 20091009
  Serious: Yes (Death, Hospitalization, Other)
  Sender: FDA-Public Use
  Company Number: PHHY2009BR17532

PATIENT
  Age: 88 Year
  Sex: Female
  Weight: 45 kg

DRUGS (9)
  1. EXELON [Suspect]
     Indication: SENILE DEMENTIA
     Dosage: 4.5 MG
     Route: 048
     Dates: start: 20080501
  2. DIOVAN [Concomitant]
     Indication: HYPERTENSION
     Dosage: 160 MG
  3. SELOZOK [Concomitant]
     Dosage: 25 MG, IN THE MORNING
  4. LIPITOR [Concomitant]
     Dosage: UNK
  5. AAS [Concomitant]
     Indication: ANTICOAGULANT THERAPY
     Dosage: 100 MG
  6. SYNTHROID [Concomitant]
     Dosage: 50 UG
  7. GALVUS [Concomitant]
     Indication: TYPE 2 DIABETES MELLITUS
     Dosage: 50 MG
  8. GEROVITAL [Concomitant]
     Indication: HYPOVITAMINOSIS
     Dosage: UNK
  9. RIVOTRIL [Concomitant]
     Indication: SLEEP DISORDER
     Dosage: 0.5 MG

REACTIONS (2)
  - CARDIAC ARREST [None]
  - PSEUDOMONAS INFECTION [None]
